FAERS Safety Report 19016874 (Version 1)
Quarter: 2021Q1

REPORT INFORMATION
  Report Type: Spontaneous
  Country: US (occurrence: US)
  Receive Date: 20210316
  Receipt Date: 20210316
  Transmission Date: 20210420
  Serious: No
  Sender: FDA-Public Use
  Company Number: US-GILEAD-2021-0521328

PATIENT
  Age: 75 Year
  Sex: Female

DRUGS (3)
  1. RANEXA [Suspect]
     Active Substance: RANOLAZINE
     Dosage: 500 MG, BID
     Route: 065
     Dates: start: 2019
  2. RANEXA [Suspect]
     Active Substance: RANOLAZINE
     Dosage: 1000 MG, BID
     Route: 065
     Dates: start: 202103
  3. RANEXA [Suspect]
     Active Substance: RANOLAZINE
     Indication: PRODUCT USED FOR UNKNOWN INDICATION
     Dosage: 1000 MG, BID
     Route: 065

REACTIONS (1)
  - Product prescribing issue [Recovered/Resolved]

NARRATIVE: CASE EVENT DATE: 20190701
